FAERS Safety Report 7911630-4 (Version None)
Quarter: 2011Q4

REPORT INFORMATION
  Report Type: 
  Country: None (occurrence: None)
  Receive Date: 20111114
  Receipt Date: 20111114
  Transmission Date: 20120403
  Serious: Yes (Life-Threatening, Hospitalization, Disabling)
  Sender: FDA-Public Use
  Company Number: None

PATIENT
  Age: 59 Year
  Sex: Female
  Weight: 88.45 kg

DRUGS (1)
  1. MELOXICAM [Suspect]
     Indication: ARTHRALGIA
     Dosage: TAKE ONE
     Route: 048
     Dates: start: 20110901, end: 20111102

REACTIONS (2)
  - DRUG HYPERSENSITIVITY [None]
  - RENAL FAILURE ACUTE [None]
